FAERS Safety Report 9016264 (Version 3)
Quarter: 2014Q2

REPORT INFORMATION
  Report Type: Spontaneous
  Country: US (occurrence: US)
  Receive Date: 20130116
  Receipt Date: 20140409
  Transmission Date: 20141212
  Serious: Yes (Hospitalization)
  Sender: FDA-Public Use
  Company Number: US-B.I. PHARMACEUTICALS,INC./RIDGEFIELD-2013-BI-00724BP

PATIENT
  Sex: Male
  Weight: 134.26 kg

DRUGS (15)
  1. PRADAXA [Suspect]
     Indication: ANTICOAGULANT THERAPY
     Dosage: 300 MG
     Route: 048
     Dates: start: 20111229, end: 20120128
  2. PRADAXA [Suspect]
     Indication: ATRIAL FIBRILLATION
  3. PRADAXA [Suspect]
     Indication: THROMBOSIS PROPHYLAXIS
  4. CITALOPRAM [Concomitant]
     Route: 065
  5. PERCOCET [Concomitant]
     Route: 065
  6. LEVAQUIN [Concomitant]
     Route: 065
  7. FUROSEMIDE [Concomitant]
     Dosage: 40 MG
     Route: 048
  8. LANTUS [Concomitant]
     Dosage: 80 U
     Route: 065
  9. LISPRO [Concomitant]
     Dosage: 40 U
     Route: 065
  10. TRAZODONE [Concomitant]
     Dosage: 50 MG
     Route: 065
  11. GEMFIBROZIL [Concomitant]
     Dosage: 1200 MG
     Route: 065
  12. METFORMIN [Concomitant]
     Dosage: 2 G
     Route: 065
  13. LISINOPRIL [Concomitant]
     Dosage: 20 MG
     Route: 065
  14. ASPIRIN [Concomitant]
     Dosage: 81 MG
     Route: 065
  15. BENADRYL [Concomitant]
     Dosage: 12.5 MG
     Route: 065

REACTIONS (3)
  - Gastrointestinal haemorrhage [Unknown]
  - Haemorrhagic anaemia [Unknown]
  - Coagulopathy [Unknown]
